FAERS Safety Report 6686668-8 (Version None)
Quarter: 2010Q2

REPORT INFORMATION
  Report Type: 
  Country: None (occurrence: None)
  Receive Date: 20100416
  Receipt Date: 20100416
  Transmission Date: 20101027
  Serious: Yes (Hospitalization, Other)
  Sender: FDA-Public Use
  Company Number: None

PATIENT
  Age: 57 Year
  Sex: Male
  Weight: 77.5651 kg

DRUGS (2)
  1. NEXIUM [Suspect]
     Indication: GASTROOESOPHAGEAL REFLUX DISEASE
     Dosage: 40 ONCE Q DAY PO
     Route: 048
     Dates: start: 20070101
  2. NEXIUM [Suspect]
     Indication: PEPTIC ULCER
     Dosage: 40 ONCE Q DAY PO
     Route: 048
     Dates: start: 20070101

REACTIONS (3)
  - DUODENAL ULCER HAEMORRHAGE [None]
  - HAEMORRHAGIC ANAEMIA [None]
  - PEPTIC ULCER HAEMORRHAGE [None]
